FAERS Safety Report 20953422 (Version 3)
Quarter: 2022Q2

REPORT INFORMATION
  Report Type: Other
  Country: US (occurrence: None)
  Receive Date: 20220613
  Receipt Date: 20220621
  Transmission Date: 20220720
  Serious: Yes (Other)
  Sender: FDA-Public Use
  Company Number: US-ROCHE-3115163

PATIENT
  Sex: Female

DRUGS (34)
  1. XOLAIR [Suspect]
     Active Substance: OMALIZUMAB
     Indication: Urticaria
     Route: 058
  2. XOLAIR [Suspect]
     Active Substance: OMALIZUMAB
  3. XOLAIR [Suspect]
     Active Substance: OMALIZUMAB
     Indication: Idiopathic urticaria
  4. XOLAIR [Suspect]
     Active Substance: OMALIZUMAB
  5. ZYRTEC [Concomitant]
     Active Substance: CETIRIZINE HYDROCHLORIDE
  6. ALLEGRA ALLERGY [Concomitant]
     Active Substance: FEXOFENADINE HYDROCHLORIDE
  7. CLARITIN [Concomitant]
     Active Substance: LORATADINE
  8. BENADRYL [Concomitant]
     Active Substance: DIPHENHYDRAMINE HYDROCHLORIDE
  9. ZANTAC [Concomitant]
     Active Substance: RANITIDINE HYDROCHLORIDE
  10. FLONASE [Concomitant]
     Active Substance: FLUTICASONE PROPIONATE
  11. WELCHOL [Concomitant]
     Active Substance: COLESEVELAM HYDROCHLORIDE
  12. ALBUTEROL SULFATE [Concomitant]
     Active Substance: ALBUTEROL SULFATE
  13. ATIVAN [Concomitant]
     Active Substance: LORAZEPAM
  14. TYLENOL [Concomitant]
     Active Substance: ACETAMINOPHEN
  15. IBUPROFEN [Concomitant]
     Active Substance: IBUPROFEN
  16. IMITREX [Concomitant]
     Active Substance: SUMATRIPTAN SUCCINATE
  17. LAMICTAL [Concomitant]
     Active Substance: LAMOTRIGINE
  18. ESCITALOPRAM OXALATE [Concomitant]
     Active Substance: ESCITALOPRAM OXALATE
  19. EPIPEN [Concomitant]
     Active Substance: EPINEPHRINE
  20. KETOTIFEN [Concomitant]
     Active Substance: KETOTIFEN
  21. FAMOTIDINE [Concomitant]
     Active Substance: FAMOTIDINE
  22. LOSARTAN POTASSIUM [Concomitant]
     Active Substance: LOSARTAN POTASSIUM
  23. TRULICITY [Concomitant]
     Active Substance: DULAGLUTIDE
  24. HYDROCORTISONE [Concomitant]
     Active Substance: HYDROCORTISONE
  25. PREDNISONE [Concomitant]
     Active Substance: PREDNISONE
  26. EPINEPHRINE [Concomitant]
     Active Substance: EPINEPHRINE
  27. CROMOLYN SODIUM [Concomitant]
     Active Substance: CROMOLYN SODIUM
  28. BUDESONIDE [Concomitant]
     Active Substance: BUDESONIDE
  29. ALBUTEROL\IPRATROPIUM [Concomitant]
     Active Substance: ALBUTEROL\IPRATROPIUM
  30. MOMETASONE FUROATE [Concomitant]
     Active Substance: MOMETASONE FUROATE
  31. KETOTIFEN FUMARATE [Concomitant]
     Active Substance: KETOTIFEN FUMARATE
  32. METFORMIN [Concomitant]
     Active Substance: METFORMIN HYDROCHLORIDE
  33. TRIAMCINOLONE ACETONIDE [Concomitant]
     Active Substance: TRIAMCINOLONE ACETONIDE
  34. ZANTAC [Concomitant]
     Active Substance: RANITIDINE HYDROCHLORIDE

REACTIONS (18)
  - Mast cell activation syndrome [Unknown]
  - Uveitis [Unknown]
  - Sepsis [Unknown]
  - Diabetes mellitus [Unknown]
  - Anaphylactic reaction [Unknown]
  - Off label use [Unknown]
  - Tryptase increased [Unknown]
  - Arthralgia [Unknown]
  - Adrenal disorder [Unknown]
  - Red blood cell sedimentation rate increased [Unknown]
  - C-reactive protein increased [Unknown]
  - Weight increased [Unknown]
  - Ill-defined disorder [Unknown]
  - Skin wound [Unknown]
  - Blood glucose increased [Unknown]
  - Hypogammaglobulinaemia [Unknown]
  - Arthralgia [Unknown]
  - Unevaluable event [Unknown]
